FAERS Safety Report 5655942-6 (Version None)
Quarter: 2008Q1

REPORT INFORMATION
  Report Type: 
  Country: None (occurrence: None)
  Receive Date: 20080307
  Receipt Date: 20080225
  Transmission Date: 20080703
  Serious: No
  Sender: FDA-Public Use
  Company Number: US-BOEHRINGER INGELHEIM GMBH, GERMANY-2007-BP-26546BP

PATIENT
  Sex: Female

DRUGS (11)
  1. SPIRIVA [Suspect]
     Indication: CHRONIC OBSTRUCTIVE PULMONARY DISEASE
     Route: 055
     Dates: start: 20071202
  2. ALBUTEROL [Concomitant]
  3. ZETIA [Concomitant]
  4. ZOCOR [Concomitant]
  5. LOPRESSOR [Concomitant]
  6. ARICEPT [Concomitant]
  7. ACTOS [Concomitant]
  8. IMDUR [Concomitant]
  9. DIOVAN [Concomitant]
  10. LOTENSIN [Concomitant]
  11. ASPIRIN [Concomitant]

REACTIONS (1)
  - PRURITUS [None]
